FAERS Safety Report 20465735 (Version 1)
Quarter: 2022Q1

REPORT INFORMATION
  Report Type: Report from Study
  Country: GB (occurrence: GB)
  Receive Date: 20220212
  Receipt Date: 20220212
  Transmission Date: 20220423
  Serious: Yes (Other)
  Sender: FDA-Public Use
  Company Number: GB-BAXTER-2022BAX001138

PATIENT
  Age: 36 Year
  Sex: Female
  Weight: 55.7 kg

DRUGS (6)
  1. LEVOTHYROXINE [Suspect]
     Active Substance: LEVOTHYROXINE
     Indication: Product used for unknown indication
     Dosage: 75 MICROGRAM DAILY;
     Route: 048
  2. FLUTICASONE PROPIONATE\FORMOTEROL FUMARATE [Suspect]
     Active Substance: FLUTICASONE PROPIONATE\FORMOTEROL FUMARATE
     Indication: Product used for unknown indication
     Dosage: 250 MICROGRAM DAILY;
     Route: 055
  3. SODIUM CHLORIDE [Suspect]
     Active Substance: SODIUM CHLORIDE
     Indication: Medication dilution
     Dosage: 230 ML DAILY; PIPERACILLIN/TAZOBACTAM 18 GRAM IN 230 ML SODIUM CHLORIDE, INTRAVENOUS VIA MIDLINE IN
     Route: 042
     Dates: start: 20220115
  4. VENTOLIN [Suspect]
     Active Substance: ALBUTEROL SULFATE
     Indication: Dyspnoea
     Route: 055
  5. SODIUM CITRATE [Suspect]
     Active Substance: SODIUM CITRATE
     Indication: Product used for unknown indication
     Dosage: VIA MIDLINE IN LEFT ARM
     Route: 042
     Dates: start: 20220115
  6. PIPERACILLIN AND TAZOBACTAM [Suspect]
     Active Substance: PIPERACILLIN SODIUM\TAZOBACTAM SODIUM
     Indication: Bronchiectasis
     Dosage: 18 GRAM DAILY;  VIA MIDLINE IN LEFT ARM,
     Route: 042
     Dates: start: 20220115

REACTIONS (5)
  - Malaise [Recovering/Resolving]
  - Productive cough [Recovering/Resolving]
  - Palpitations [Recovering/Resolving]
  - Feeling cold [Recovered/Resolved with Sequelae]
  - Paraesthesia [Recovered/Resolved with Sequelae]

NARRATIVE: CASE EVENT DATE: 20220115
